FAERS Safety Report 23890700 (Version 1)
Quarter: 2024Q2

REPORT INFORMATION
  Report Type: Spontaneous
  Country: US (occurrence: US)
  Receive Date: 20240523
  Receipt Date: 20240523
  Transmission Date: 20240715
  Serious: No
  Sender: FDA-Public Use
  Company Number: US-TEVA-VS-3197801

PATIENT
  Age: 50 Year
  Sex: Female

DRUGS (3)
  1. AJOVY [Suspect]
     Active Substance: FREMANEZUMAB-VFRM
     Indication: Migraine
     Dosage: 225/1.5 MG/ML
     Route: 065
     Dates: start: 20240320
  2. AJOVY [Suspect]
     Active Substance: FREMANEZUMAB-VFRM
  3. TRYPTOPHAN [Concomitant]
     Active Substance: TRYPTOPHAN
     Indication: Migraine
     Route: 065

REACTIONS (11)
  - Vomiting [Recovered/Resolved]
  - Fatigue [Recovering/Resolving]
  - Migraine [Recovering/Resolving]
  - Pain [Recovering/Resolving]
  - Weight increased [Unknown]
  - Gait inability [Recovering/Resolving]
  - Anxiety [Recovering/Resolving]
  - Peripheral coldness [Unknown]
  - Arthralgia [Recovering/Resolving]
  - Pain in extremity [Recovering/Resolving]
  - Paraesthesia [Unknown]

NARRATIVE: CASE EVENT DATE: 20240101
